FAERS Safety Report 7631708-2 (Version None)
Quarter: 2011Q3

REPORT INFORMATION
  Report Type: 
  Country: None (occurrence: None)
  Receive Date: 20110725
  Receipt Date: 20110712
  Transmission Date: 20111222
  Serious: Yes (Hospitalization, Other)
  Sender: FDA-Public Use
  Company Number: AU-ELI_LILLY_AND_COMPANY-AU201107002877

PATIENT
  Sex: Female

DRUGS (2)
  1. FORTEO [Suspect]
     Indication: OSTEOPOROSIS
     Dosage: 20 UG, QD
     Dates: start: 20100815
  2. LIPITOR [Concomitant]

REACTIONS (3)
  - HYPERTENSION [None]
  - TRANSIENT ISCHAEMIC ATTACK [None]
  - BLOOD CHOLESTEROL INCREASED [None]
